FAERS Safety Report 9891132 (Version 1)
Quarter: 2014Q1

REPORT INFORMATION
  Report Type: Spontaneous
  Country: MX (occurrence: MX)
  Receive Date: 20140212
  Receipt Date: 20140212
  Transmission Date: 20141002
  Serious: Yes (Hospitalization)
  Sender: FDA-Public Use
  Company Number: MX-PERRIGO-14MX001195

PATIENT
  Age: 22 Year
  Sex: Male
  Weight: 69 kg

DRUGS (3)
  1. CLINDAMYCIN PALMITATE HYDROCHLORIDE RX 15 MG/ML 3G2 [Suspect]
     Indication: TONSILLITIS
     Dosage: 1800 MG, QD
     Route: 048
  2. CLINDAMYCIN PALMITATE HYDROCHLORIDE RX 15 MG/ML 3G2 [Suspect]
     Indication: COUGH
  3. CLINDAMYCIN PALMITATE HYDROCHLORIDE RX 15 MG/ML 3G2 [Suspect]
     Indication: PYREXIA

REACTIONS (2)
  - Bone marrow failure [Recovered/Resolved]
  - Pancytopenia [Recovered/Resolved]
